FAERS Safety Report 14354445 (Version 1)
Quarter: 2018Q1

REPORT INFORMATION
  Report Type: Spontaneous
  Country: FR (occurrence: FR)
  Receive Date: 20180105
  Receipt Date: 20180105
  Transmission Date: 20180509
  Serious: Yes (Hospitalization, Disabling)
  Sender: FDA-Public Use
  Company Number: FR-ROCHE-2049242

PATIENT
  Sex: Male
  Weight: 71 kg

DRUGS (2)
  1. COPEGUS [Suspect]
     Active Substance: RIBAVIRIN
     Indication: HEPATITIS C
     Route: 048
  2. PEGASYS [Suspect]
     Active Substance: PEGINTERFERON ALFA-2A
     Indication: HEPATITIS C
     Route: 058
     Dates: start: 200701, end: 200802

REACTIONS (2)
  - Interstitial lung disease [Recovered/Resolved with Sequelae]
  - Lung transplant [Recovered/Resolved with Sequelae]

NARRATIVE: CASE EVENT DATE: 20071106
